FAERS Safety Report 25533103 (Version 1)
Quarter: 2025Q3

REPORT INFORMATION
  Report Type: Spontaneous
  Country: GB (occurrence: GB)
  Receive Date: 20250709
  Receipt Date: 20250709
  Transmission Date: 20251021
  Serious: Yes (Disabling, Other)
  Sender: TAKEDA
  Company Number: None

PATIENT
  Age: 35 Year
  Sex: Female

DRUGS (4)
  1. LISDEXAMFETAMINE DIMESYLATE [Interacting]
     Active Substance: LISDEXAMFETAMINE DIMESYLATE
     Indication: Attention deficit hyperactivity disorder
  2. MOUNJARO [Interacting]
     Active Substance: TIRZEPATIDE
     Indication: Adverse drug reaction
  3. MOUNJARO [Interacting]
     Active Substance: TIRZEPATIDE
     Indication: Weight increased
  4. MOUNJARO [Interacting]
     Active Substance: TIRZEPATIDE
     Indication: Hypertension

REACTIONS (4)
  - Brain fog [Not Recovered/Not Resolved]
  - Anhedonia [Not Recovered/Not Resolved]
  - Drug interaction [Not Recovered/Not Resolved]
  - Depressed mood [Not Recovered/Not Resolved]

NARRATIVE: CASE EVENT DATE: 20250501
